FAERS Safety Report 16254877 (Version 1)
Quarter: 2019Q2

REPORT INFORMATION
  Report Type: Spontaneous
  Country: US (occurrence: US)
  Receive Date: 20190430
  Receipt Date: 20190430
  Transmission Date: 20190711
  Serious: Yes (Other)
  Sender: FDA-Public Use
  Company Number: US-STRIDES ARCOLAB LIMITED-2019SP003526

PATIENT
  Age: 67 Year
  Sex: Male

DRUGS (3)
  1. FRESH FROZEN PLASMA [Concomitant]
     Active Substance: HUMAN PLASMA
     Indication: HAEMORRHAGE
     Dosage: UNK
     Route: 065
  2. IBUPROFEN. [Suspect]
     Active Substance: IBUPROFEN
     Indication: PERICARDITIS
     Dosage: UNK
     Route: 065
  3. VITAMIN K [Concomitant]
     Active Substance: PHYTONADIONE
     Indication: HAEMORRHAGE
     Dosage: UNK
     Route: 065

REACTIONS (1)
  - Symptom masked [Unknown]
